FAERS Safety Report 4814060-7 (Version None)
Quarter: 2005Q4

REPORT INFORMATION
  Report Type: 
  Country: None (occurrence: None)
  Receive Date: 20051028
  Receipt Date: 20050802
  Transmission Date: 20060501
  Serious: No
  Sender: FDA-Public Use
  Company Number: US-GLAXOSMITHKLINE-A0568637A

PATIENT
  Age: 40 Year
  Sex: Female

DRUGS (6)
  1. SEREVENT [Suspect]
     Indication: ASTHMA
     Dosage: 1PUFF TWICE PER DAY
     Route: 055
  2. ALLEGRA [Concomitant]
  3. PREMARIN [Concomitant]
  4. MECLIZINE [Concomitant]
  5. FLEXERIL [Concomitant]
  6. HYDROCODONE [Concomitant]

REACTIONS (3)
  - DYSPHONIA [None]
  - ILL-DEFINED DISORDER [None]
  - PHARMACEUTICAL PRODUCT COMPLAINT [None]
